FAERS Safety Report 4786261-8 (Version None)
Quarter: 2005Q3

REPORT INFORMATION
  Report Type: 
  Country: None (occurrence: None)
  Receive Date: 20050926
  Receipt Date: 20050728
  Transmission Date: 20060218
  Serious: Yes (Life-Threatening, Other)
  Sender: FDA-Public Use
  Company Number: 2005089126

PATIENT
  Age: 62 Year
  Sex: Female
  Weight: 90.7194 kg

DRUGS (5)
  1. NARDIL [Suspect]
     Indication: DEPRESSION
     Dosage: 75 MG (75 MG,1 IN 1 D), ORAL
     Route: 048
     Dates: start: 20050101
  2. DIURETICS [Concomitant]
  3. CALCIUM CHANNEL BLOCKERS [Concomitant]
  4. ALL OTHER THERAPEUTIC PRODUCTS [Concomitant]
  5. BETA BLOCKING AGENTS [Concomitant]

REACTIONS (3)
  - BLOOD PRESSURE DECREASED [None]
  - HEADACHE [None]
  - HYPERTENSIVE CRISIS [None]
